FAERS Safety Report 13567959 (Version 1)
Quarter: 2017Q2

REPORT INFORMATION
  Report Type: Spontaneous
  Country: DE (occurrence: DE)
  Receive Date: 20170522
  Receipt Date: 20170522
  Transmission Date: 20170830
  Serious: Yes (Hospitalization)
  Sender: FDA-Public Use
  Company Number: DE-JNJFOC-20170226796

PATIENT
  Age: 25 Year
  Sex: Male

DRUGS (5)
  1. HALDOL [Suspect]
     Active Substance: HALOPERIDOL
     Indication: PRODUCT USED FOR UNKNOWN INDICATION
     Route: 048
  2. VALPROAT [Concomitant]
     Active Substance: VALPROATE SODIUM
     Route: 065
  3. SOLIAN [Concomitant]
     Active Substance: AMISULPRIDE
     Route: 065
  4. LEPONEX [Concomitant]
     Active Substance: CLOZAPINE
     Route: 065
  5. DIAZEPAM. [Concomitant]
     Active Substance: DIAZEPAM
     Route: 065

REACTIONS (5)
  - Tremor [Unknown]
  - Somnolence [Unknown]
  - Fatigue [Unknown]
  - Chills [Unknown]
  - Initial insomnia [Unknown]
